FAERS Safety Report 20371273 (Version 1)
Quarter: 2022Q1

REPORT INFORMATION
  Report Type: Spontaneous
  Country: FR (occurrence: FR)
  Receive Date: 20220124
  Receipt Date: 20220124
  Transmission Date: 20220423
  Serious: Yes (Other)
  Sender: FDA-Public Use
  Company Number: FR-GUERBET-FR-20220007

PATIENT
  Age: 40 Year
  Sex: Female

DRUGS (1)
  1. IOVERSOL [Suspect]
     Active Substance: IOVERSOL
     Indication: Product used for unknown indication
     Dosage: APPROXIMATELY 40 ML
     Route: 065
     Dates: start: 20220107, end: 20220107

REACTIONS (4)
  - Necrosis [Not Recovered/Not Resolved]
  - Epidermolysis [Not Recovered/Not Resolved]
  - Pain of skin [Not Recovered/Not Resolved]
  - Extravasation [Not Recovered/Not Resolved]

NARRATIVE: CASE EVENT DATE: 20220107
